FAERS Safety Report 13304919 (Version 2)
Quarter: 2017Q1

REPORT INFORMATION
  Report Type: Spontaneous
  Country: JP (occurrence: JP)
  Receive Date: 20170308
  Receipt Date: 20170315
  Transmission Date: 20170428
  Serious: Yes (Death, Hospitalization, Other)
  Sender: FDA-Public Use
  Company Number: JP-SUN PHARMACEUTICAL INDUSTRIES LTD-2017RR-134840

PATIENT
  Age: 59 Year
  Sex: Male

DRUGS (6)
  1. METHYLPREDNISOLONE. [Suspect]
     Active Substance: METHYLPREDNISOLONE
     Indication: INTERSTITIAL LUNG DISEASE
     Dosage: 1000 MG, DAILY
     Route: 042
  2. ALENDRONIC ACID [Suspect]
     Active Substance: ALENDRONIC ACID
     Indication: PROPHYLAXIS
     Dosage: 35 MG, 1/WEEK
     Route: 048
  3. INSULIN [Concomitant]
     Active Substance: INSULIN NOS
     Indication: DIABETES MELLITUS
     Dosage: UNK
     Route: 065
  4. PREDNISOLONE SODIUM SUCCINATE [Suspect]
     Active Substance: PREDNISOLONE SODIUM SUCCINATE
     Indication: INTERSTITIAL LUNG DISEASE
     Dosage: 20 MG, BID
     Route: 042
  5. PREDNISOLONE. [Suspect]
     Active Substance: PREDNISOLONE
     Indication: INTERSTITIAL LUNG DISEASE
     Dosage: 60 MG, DAILY
     Route: 048
  6. METHYLPREDNISOLONE. [Suspect]
     Active Substance: METHYLPREDNISOLONE
     Dosage: 1000 MG, DAILY
     Route: 042

REACTIONS (5)
  - Disseminated intravascular coagulation [Unknown]
  - Osteonecrosis of jaw [Not Recovered/Not Resolved]
  - Cellulitis [Not Recovered/Not Resolved]
  - Sepsis [Fatal]
  - Multiple organ dysfunction syndrome [Fatal]

NARRATIVE: CASE EVENT DATE: 20140513
